FAERS Safety Report 8985599 (Version 4)
Quarter: 2013Q4

REPORT INFORMATION
  Report Type: Spontaneous
  Country: GB (occurrence: GB)
  Receive Date: 20121226
  Receipt Date: 20131008
  Transmission Date: 20140711
  Serious: Yes (Other)
  Sender: FDA-Public Use
  Company Number: GB-PFIZER INC-2012321495

PATIENT
  Sex: 0

DRUGS (2)
  1. REVATIO [Suspect]
     Dosage: UNK
  2. NITROGLYCERIN [Suspect]
     Dosage: UNK

REACTIONS (2)
  - Chest pain [Unknown]
  - Drug prescribing error [Unknown]
